FAERS Safety Report 19884141 (Version 1)
Quarter: 2021Q3

REPORT INFORMATION
  Report Type: Spontaneous
  Country: PL (occurrence: PL)
  Receive Date: 20210927
  Receipt Date: 20210927
  Transmission Date: 20211014
  Serious: Yes (Hospitalization, Other)
  Sender: FDA-Public Use
  Company Number: PL-VISTAPHARM, INC.-VER202109-001932

PATIENT
  Age: 27 Year
  Sex: Male

DRUGS (3)
  1. AMPHETAMINE [Suspect]
     Active Substance: AMPHETAMINE
     Indication: PRODUCT USED FOR UNKNOWN INDICATION
     Dosage: UNKNOWN
     Route: 065
  2. METHADONE [Suspect]
     Active Substance: METHADONE HYDROCHLORIDE
     Indication: PRODUCT USED FOR UNKNOWN INDICATION
     Dosage: UNKNOWN
     Route: 065
  3. CRACK COCAINE [Suspect]
     Active Substance: COCAINE
     Indication: PRODUCT USED FOR UNKNOWN INDICATION
     Dosage: UNKNOWN
     Route: 065

REACTIONS (10)
  - Dysphagia [Unknown]
  - Post stroke epilepsy [Unknown]
  - Acute respiratory distress syndrome [Unknown]
  - Dysarthria [Unknown]
  - Dystonia [Unknown]
  - Poisoning [Unknown]
  - Tracheobronchitis [Unknown]
  - Parkinsonism [Unknown]
  - Coma [Unknown]
  - Drug abuse [Unknown]
